FAERS Safety Report 10170230 (Version 3)
Quarter: 2014Q2

REPORT INFORMATION
  Report Type: Report from Study
  Country: US (occurrence: US)
  Receive Date: 20140513
  Receipt Date: 20140520
  Transmission Date: 20141212
  Serious: Yes (Hospitalization, Other)
  Sender: FDA-Public Use
  Company Number: US-JNJFOC-20131117306

PATIENT
  Age: 68 Year
  Sex: Male
  Weight: 94.1 kg

DRUGS (9)
  1. IBRUTINIB [Suspect]
     Route: 048
  2. IBRUTINIB [Suspect]
     Indication: CHRONIC LYMPHOCYTIC LEUKAEMIA
     Route: 048
     Dates: start: 20130829
  3. BENDAMUSTINE HYDROCHLORIDE [Suspect]
     Indication: CHRONIC LYMPHOCYTIC LEUKAEMIA
     Route: 042
     Dates: start: 20130829
  4. RITUXIMAB [Suspect]
     Indication: CHRONIC LYMPHOCYTIC LEUKAEMIA
     Route: 042
     Dates: start: 20130820
  5. ASPIRIN [Suspect]
     Indication: CORONARY ARTERY DISEASE
  6. NEULASTA [Concomitant]
  7. RANITIDINE [Concomitant]
  8. PRILOSEC [Concomitant]
  9. PEPTO BISMOL [Concomitant]
     Dates: start: 20131117

REACTIONS (3)
  - Gastrointestinal haemorrhage [Unknown]
  - Gastritis [Recovered/Resolved]
  - Oesophageal ulcer [Recovered/Resolved]
